FAERS Safety Report 13672574 (Version 4)
Quarter: 2018Q1

REPORT INFORMATION
  Report Type: Spontaneous
  Country: JP (occurrence: JP)
  Receive Date: 20170621
  Receipt Date: 20180130
  Transmission Date: 20180508
  Serious: Yes (Hospitalization, Other)
  Sender: FDA-Public Use
  Company Number: JP-ACTELION-A-CH2017-155454

PATIENT
  Age: 70 Year
  Sex: Female
  Weight: 42 kg

DRUGS (6)
  1. UPTRAVI [Suspect]
     Active Substance: SELEXIPAG
     Dosage: 400 ?G, QD
     Route: 048
     Dates: start: 20170427, end: 20170510
  2. UNASYN S [Concomitant]
     Active Substance: AMPICILLIN SODIUM\SULBACTAM SODIUM
     Dosage: UNK
     Dates: start: 20170517, end: 20170525
  3. UPTRAVI [Suspect]
     Active Substance: SELEXIPAG
     Indication: PULMONARY ARTERIAL HYPERTENSION
     Dosage: 800 ?G, QD
     Route: 048
     Dates: start: 20170511, end: 20170530
  4. LUPRAC [Concomitant]
     Active Substance: TORSEMIDE
     Dosage: UNK
     Dates: start: 20131021
  5. UPTRAVI [Suspect]
     Active Substance: SELEXIPAG
     Dosage: 200 ?G, QD
     Route: 048
     Dates: start: 20170413, end: 20170426
  6. OPSUMIT [Concomitant]
     Active Substance: MACITENTAN
     Dosage: UNK
     Dates: start: 20170322, end: 20170604

REACTIONS (5)
  - Pleural effusion [Unknown]
  - Brain natriuretic peptide increased [Recovered/Resolved]
  - Left ventricular failure [Recovered/Resolved]
  - Pneumonia [Recovered/Resolved]
  - C-reactive protein increased [Recovered/Resolved]

NARRATIVE: CASE EVENT DATE: 20170511
